FAERS Safety Report 15301951 (Version 1)
Quarter: 2018Q3

REPORT INFORMATION
  Report Type: Spontaneous
  Country: US (occurrence: US)
  Receive Date: 20180821
  Receipt Date: 20180821
  Transmission Date: 20181010
  Serious: No
  Sender: FDA-Public Use
  Company Number: US-SA-2018SA231292

PATIENT
  Sex: Female

DRUGS (2)
  1. SALONPAS [MENTHOL;METHYL SALICYLATE] [Concomitant]
     Indication: PRODUCT USED FOR UNKNOWN INDICATION
  2. ASPERCREME WITH LIDOCAINE [Suspect]
     Active Substance: LIDOCAINE
     Indication: PAIN IN EXTREMITY

REACTIONS (1)
  - Wrong technique in product usage process [Unknown]
